FAERS Safety Report 8294951-8 (Version None)
Quarter: 2012Q2

REPORT INFORMATION
  Report Type: 
  Country: None (occurrence: None)
  Receive Date: 20120418
  Receipt Date: 20120409
  Transmission Date: 20120825
  Serious: Yes (Hospitalization)
  Sender: FDA-Public Use
  Company Number: JP-JNJFOC-20120405277

PATIENT
  Age: 61 Year
  Sex: Female
  Weight: 58 kg

DRUGS (15)
  1. LANSOPRAZOLE [Concomitant]
     Route: 048
  2. TRAMADOL HYDROCHLORIDE AND ACETAMINOPHEN [Concomitant]
     Route: 048
  3. NORVASC [Concomitant]
     Route: 048
  4. ALENDRONATE SODIUM [Concomitant]
     Route: 048
  5. ALDACTONE [Concomitant]
     Route: 048
  6. COTRIM [Concomitant]
     Route: 048
  7. SELBEX [Concomitant]
     Route: 048
  8. ALLOPURINOL [Concomitant]
     Route: 048
  9. NEORAL [Concomitant]
     Route: 048
  10. WARFARIN SODIUM [Interacting]
     Indication: DEEP VEIN THROMBOSIS
     Route: 048
     Dates: start: 20120312
  11. WARFARIN SODIUM [Interacting]
     Route: 048
     Dates: start: 20030421, end: 20120228
  12. PREDNISOLONE [Concomitant]
     Route: 048
  13. MICONAZOLE [Suspect]
     Route: 049
  14. MICONAZOLE [Suspect]
     Indication: ORAL CANDIDIASIS
     Route: 049
     Dates: start: 20120216, end: 20120228
  15. ASPARTATE POTASSIUM [Concomitant]
     Route: 048

REACTIONS (5)
  - PURPURA [None]
  - DRUG INTERACTION [None]
  - INTERNATIONAL NORMALISED RATIO INCREASED [None]
  - MALAISE [None]
  - ANAEMIA [None]
